FAERS Safety Report 15463007 (Version 1)
Quarter: 2018Q4

REPORT INFORMATION
  Report Type: Spontaneous
  Country: AT (occurrence: AT)
  Receive Date: 20181004
  Receipt Date: 20181004
  Transmission Date: 20190204
  Serious: Yes (Other)
  Sender: FDA-Public Use
  Company Number: AT-TEVA-2018-AT-959155

PATIENT
  Age: 48 Year
  Sex: Male
  Weight: 119 kg

DRUGS (3)
  1. QUETIAPIN [Suspect]
     Active Substance: QUETIAPINE
     Dosage: 2 DOSAGE FORMS DAILY;
     Route: 048
     Dates: start: 20140716
  2. IXEL [Suspect]
     Active Substance: MILNACIPRAN HYDROCHLORIDE
     Indication: DEPRESSION
     Dosage: 1 DOSAGE FORMS DAILY;
     Route: 065
     Dates: start: 20131209
  3. STRIBILD [Suspect]
     Active Substance: COBICISTAT\ELVITEGRAVIR\EMTRICITABINE\TENOFOVIR DISOPROXIL FUMARATE
     Indication: HIV CARRIER
     Dosage: 1 DOSAGE FORMS DAILY;
     Route: 065
     Dates: start: 2015

REACTIONS (1)
  - Generalised tonic-clonic seizure [Not Recovered/Not Resolved]

NARRATIVE: CASE EVENT DATE: 201712
